FAERS Safety Report 15042156 (Version 3)
Quarter: 2018Q3

REPORT INFORMATION
  Report Type: Report from Study
  Country: US (occurrence: US)
  Receive Date: 20180621
  Receipt Date: 20180803
  Transmission Date: 20181010
  Serious: Yes (Other)
  Sender: FDA-Public Use
  Company Number: US-ROCHE-2141449

PATIENT
  Sex: Female

DRUGS (3)
  1. OCREVUS [Suspect]
     Active Substance: OCRELIZUMAB
     Route: 042
     Dates: start: 20180119
  2. OCREVUS [Suspect]
     Active Substance: OCRELIZUMAB
     Indication: PRIMARY PROGRESSIVE MULTIPLE SCLEROSIS
     Dosage: ONGOING: YES
     Route: 042
     Dates: start: 2017
  3. OCREVUS [Suspect]
     Active Substance: OCRELIZUMAB
     Dosage: ONGOING; NO
     Route: 042
     Dates: end: 201801

REACTIONS (5)
  - Cystitis [Recovered/Resolved]
  - Dyspnoea [Unknown]
  - Chest discomfort [Not Recovered/Not Resolved]
  - Urinary tract infection [Unknown]
  - Dyspnoea [Not Recovered/Not Resolved]

NARRATIVE: CASE EVENT DATE: 2017
